FAERS Safety Report 7029807-1 (Version None)
Quarter: 2010Q4

REPORT INFORMATION
  Report Type: 
  Country: None (occurrence: None)
  Receive Date: 20101006
  Receipt Date: 20100927
  Transmission Date: 20110411
  Serious: Yes (Hospitalization)
  Sender: FDA-Public Use
  Company Number: US-BIOGENIDEC-2010BI028378

PATIENT
  Age: 31 Year
  Sex: Female

DRUGS (9)
  1. TYSABRI [Suspect]
     Indication: MULTIPLE SCLEROSIS
     Route: 042
     Dates: start: 20070619
  2. AMPYRA [Concomitant]
     Indication: MULTIPLE SCLEROSIS
  3. CLOZAPINE [Concomitant]
     Indication: PSYCHOTIC DISORDER
  4. DEPAKOTE [Concomitant]
     Indication: PSYCHOTIC DISORDER
  5. MIDODRINE HYDROCHLORIDE [Concomitant]
     Indication: ORTHOSTATIC HYPOTENSION
  6. PEPCID [Concomitant]
     Indication: GASTROOESOPHAGEAL REFLUX DISEASE
  7. PROTONIX [Concomitant]
     Indication: GASTROOESOPHAGEAL REFLUX DISEASE
  8. METOPROLOL [Concomitant]
     Indication: TACHYCARDIA
  9. FLUDROCORTISONE [Concomitant]
     Indication: ORTHOSTATIC HYPOTENSION

REACTIONS (1)
  - AFFECTIVE DISORDER [None]
